FAERS Safety Report 5905355-4 (Version None)
Quarter: 2008Q4

REPORT INFORMATION
  Report Type: 
  Country: None (occurrence: None)
  Receive Date: 20081001
  Receipt Date: 20080919
  Transmission Date: 20090506
  Serious: Yes (Other)
  Sender: FDA-Public Use
  Company Number: US-PFIZER INC-2008071692

PATIENT
  Sex: Male
  Weight: 109.09 kg

DRUGS (8)
  1. LYRICA [Suspect]
     Indication: MUSCLE CONTRACTURE
     Route: 048
     Dates: start: 20080501
  2. LOVASTATIN [Concomitant]
     Indication: BLOOD CHOLESTEROL INCREASED
  3. LOPRESSOR [Concomitant]
     Indication: HYPERTENSION
  4. PLAVIX [Concomitant]
     Indication: CEREBROVASCULAR ACCIDENT
  5. TRAZODONE HCL [Concomitant]
  6. NEXIUM [Concomitant]
  7. TOPAMAX [Concomitant]
     Indication: MUSCLE SPASMS
  8. CYMBALTA [Concomitant]

REACTIONS (3)
  - DIPLOPIA [None]
  - ROAD TRAFFIC ACCIDENT [None]
  - WEIGHT INCREASED [None]
